FAERS Safety Report 17656612 (Version 3)
Quarter: 2020Q2

REPORT INFORMATION
  Report Type: Spontaneous
  Country: FI (occurrence: FI)
  Receive Date: 20200410
  Receipt Date: 20200504
  Transmission Date: 20200713
  Serious: Yes (Other)
  Sender: FDA-Public Use
  Company Number: FI-CIRCASSIA PHARMACEUTICALS INC-2020FI002023

PATIENT
  Age: 59 Year
  Sex: Female

DRUGS (4)
  1. ACLIDINIUM BROMIDE. [Suspect]
     Active Substance: ACLIDINIUM BROMIDE
     Dosage: UNK
  2. SYMBICORT [Suspect]
     Active Substance: BUDESONIDE\FORMOTEROL FUMARATE DIHYDRATE
     Indication: PRODUCT USED FOR UNKNOWN INDICATION
     Dosage: UNK
     Route: 055
     Dates: start: 2013
  3. ACLIDINIUM BROMIDE. [Suspect]
     Active Substance: ACLIDINIUM BROMIDE
     Indication: ASTHMA
     Dosage: UNK
     Route: 055
  4. FLUTIFORM [Concomitant]
     Active Substance: FLUTICASONE PROPIONATE\FORMOTEROL FUMARATE
     Indication: PRODUCT USED FOR UNKNOWN INDICATION
     Dosage: UNK
     Route: 065

REACTIONS (9)
  - Infection [Unknown]
  - Hypothyroidism [Not Recovered/Not Resolved]
  - Memory impairment [Unknown]
  - Sleep apnoea syndrome [Recovered/Resolved]
  - Pharyngitis [Unknown]
  - Dry mouth [Unknown]
  - Infectious thyroiditis [Unknown]
  - Off label use [Unknown]
  - Brain injury [Unknown]

NARRATIVE: CASE EVENT DATE: 201912
